FAERS Safety Report 18134237 (Version 3)
Quarter: 2020Q3

REPORT INFORMATION
  Report Type: Spontaneous
  Country: DE (occurrence: DE)
  Receive Date: 20200811
  Receipt Date: 20200924
  Transmission Date: 20201103
  Serious: Yes (Hospitalization)
  Sender: FDA-Public Use
  Company Number: DE-JNJFOC-20200807919

PATIENT
  Age: 44 Year
  Sex: Male
  Weight: 110 kg

DRUGS (3)
  1. RIVAROXABAN [Suspect]
     Active Substance: RIVAROXABAN
     Dosage: 20 MG DAILY
     Route: 048
     Dates: end: 20171205
  2. RIVAROXABAN [Suspect]
     Active Substance: RIVAROXABAN
     Indication: PULMONARY EMBOLISM
     Dosage: 30MG DAILY
     Route: 048
     Dates: start: 20170811
  3. RIVAROXABAN [Suspect]
     Active Substance: RIVAROXABAN
     Dosage: 20 MG DAILY
     Route: 048
     Dates: start: 20171208

REACTIONS (5)
  - Chemotherapy [Recovered/Resolved]
  - Metastases to peritoneum [Recovered/Resolved]
  - Seminoma [Recovered/Resolved]
  - Chemotherapy [Recovered/Resolved]
  - Chemotherapy [Recovered/Resolved]

NARRATIVE: CASE EVENT DATE: 20170825
